FAERS Safety Report 4443176-2 (Version None)
Quarter: 2004Q3

REPORT INFORMATION
  Report Type: 
  Country: None (occurrence: None)
  Receive Date: 20040901
  Receipt Date: 20040819
  Transmission Date: 20050211
  Serious: Yes (Life-Threatening, Hospitalization, Other)
  Sender: FDA-Public Use
  Company Number: 2004058193

PATIENT
  Age: 39 Year
  Sex: Female
  Weight: 79.3795 kg

DRUGS (8)
  1. NEURONTIN [Suspect]
     Indication: PAIN
     Dosage: 600 MG (300 MG, 2 IN 1 D), ORAL
     Route: 048
     Dates: start: 20040525, end: 20040707
  2. BUPROPION HYDROCHLORIDE [Concomitant]
  3. CHLORDIAZEPOXIDE [Concomitant]
  4. TIZANIDINE HYDROCHLORIDE [Concomitant]
  5. VICODIN [Concomitant]
  6. DEPO-ESTRADIOL (CHLOROBUTANOL, COTTONSEED OIL, ESTRADIOL CIPIONATE) [Concomitant]
  7. MULTIVITAMIN [Concomitant]
  8. VICODIN [Concomitant]

REACTIONS (8)
  - AGITATION [None]
  - ANGER [None]
  - CRYING [None]
  - DRUG INEFFECTIVE [None]
  - INTENTIONAL SELF-INJURY [None]
  - MEMORY IMPAIRMENT [None]
  - SKIN LACERATION [None]
  - SUICIDE ATTEMPT [None]
